FAERS Safety Report 6165090-7 (Version None)
Quarter: 2009Q2

REPORT INFORMATION
  Report Type: 
  Country: None (occurrence: None)
  Receive Date: 20090421
  Receipt Date: 20090421
  Transmission Date: 20091009
  Serious: Yes (Hospitalization)
  Sender: FDA-Public Use
  Company Number: None

PATIENT
  Age: 57 Year
  Sex: Male
  Weight: 121 kg

DRUGS (10)
  1. BYETTA [Suspect]
     Indication: DIABETES MELLITUS
     Dosage: 10 UNITS DAILY SQ
  2. CLARITIN-D [Concomitant]
  3. ASPIRIN [Concomitant]
  4. METFORMIN HCL [Concomitant]
  5. ALLOPURINOL [Concomitant]
  6. NORVASC [Concomitant]
  7. CELEBREX [Concomitant]
  8. HYDROCHLORTHIAZ [Concomitant]
  9. GLUCTROL [Concomitant]
  10. HUMALOG [Concomitant]

REACTIONS (1)
  - PANCREATITIS [None]
